FAERS Safety Report 16301236 (Version 1)
Quarter: 2019Q2

REPORT INFORMATION
  Report Type: Report from Study
  Country: US (occurrence: US)
  Receive Date: 20190510
  Receipt Date: 20190510
  Transmission Date: 20190711
  Serious: Yes (Death, Hospitalization)
  Sender: FDA-Public Use
  Company Number: US-ACTELION-A-US2016-136044

PATIENT
  Age: 68 Year
  Sex: Male
  Weight: 90.7 kg

DRUGS (12)
  1. TYVASO [Suspect]
     Active Substance: TREPROSTINIL
     Indication: PULMONARY ARTERIAL HYPERTENSION
     Dosage: 18-54 MCG (3-9 BREATHS) QID
     Route: 055
     Dates: start: 20150304
  2. REGLAN [Concomitant]
     Active Substance: METOCLOPRAMIDE HYDROCHLORIDE
  3. LETAIRIS [Suspect]
     Active Substance: AMBRISENTAN
     Indication: PRODUCT USED FOR UNKNOWN INDICATION
     Dosage: 5 MG, QD
     Route: 048
     Dates: start: 20150204
  4. ASPIRIN. [Concomitant]
     Active Substance: ASPIRIN
     Dosage: 81 MG, QD
  5. ATORVASTATIN [Concomitant]
     Active Substance: ATORVASTATIN
  6. OPSUMIT [Suspect]
     Active Substance: MACITENTAN
     Dosage: 10 MG, QD
     Route: 048
  7. OPSUMIT [Suspect]
     Active Substance: MACITENTAN
     Indication: PULMONARY ARTERIAL HYPERTENSION
     Dosage: 10 MG, QD
     Route: 048
     Dates: start: 2015
  8. TYVASO [Suspect]
     Active Substance: TREPROSTINIL
     Dosage: UNK
     Route: 055
  9. LETAIRIS [Suspect]
     Active Substance: AMBRISENTAN
     Dosage: 10 MG, QD
     Route: 048
     Dates: end: 20160418
  10. ASMANEX [Concomitant]
     Active Substance: MOMETASONE FUROATE
  11. SPIRONOLACTONE. [Concomitant]
     Active Substance: SPIRONOLACTONE
     Dosage: UNK
  12. REVATIO [Concomitant]
     Active Substance: SILDENAFIL CITRATE

REACTIONS (29)
  - Feeling abnormal [Unknown]
  - Weight increased [Not Recovered/Not Resolved]
  - Oedema peripheral [Not Recovered/Not Resolved]
  - Skin tightness [Unknown]
  - Cough [Unknown]
  - Paraesthesia [Unknown]
  - Chromaturia [Unknown]
  - Joint stiffness [Not Recovered/Not Resolved]
  - Death [Fatal]
  - Dysuria [Unknown]
  - Chills [Unknown]
  - Constipation [Recovering/Resolving]
  - Fatigue [Not Recovered/Not Resolved]
  - Skin discolouration [Unknown]
  - Peripheral swelling [Unknown]
  - Cystitis [Unknown]
  - Pain in extremity [Unknown]
  - Nervousness [Unknown]
  - Nasopharyngitis [Unknown]
  - Dyspnoea exertional [Unknown]
  - Oxygen consumption increased [Unknown]
  - Escherichia test positive [Recovered/Resolved]
  - Therapy non-responder [Not Recovered/Not Resolved]
  - Urinary tract infection [Not Recovered/Not Resolved]
  - Product dose omission [Unknown]
  - Dyspnoea [Unknown]
  - Oedema [Unknown]
  - Gait disturbance [Unknown]
  - Burning sensation [Unknown]

NARRATIVE: CASE EVENT DATE: 2015
